FAERS Safety Report 6582680-8 (Version None)
Quarter: 2010Q1

REPORT INFORMATION
  Report Type: 
  Country: None (occurrence: None)
  Receive Date: 20100216
  Receipt Date: 20100204
  Transmission Date: 20100710
  Serious: Yes (Disabling)
  Sender: FDA-Public Use
  Company Number: JP-BRISTOL-MYERS SQUIBB COMPANY-14933907

PATIENT
  Age: 61 Year
  Sex: Male
  Weight: 64 kg

DRUGS (7)
  1. ERBITUX [Suspect]
     Indication: RECTAL CANCER
     Dosage: 400MG/M2(17DEC08) 250MG/M2(24DEC08-) LAST DOSE:20MAY09(16TH INF) 26AUG09 RESUMED
     Route: 042
     Dates: start: 20081217
  2. ELPLAT [Suspect]
     Indication: RECTAL CANCER
     Dates: start: 20070413, end: 20080704
  3. IRINOTECAN HCL [Concomitant]
     Indication: RECTAL CANCER
     Dosage: 17DEC08-17DEC08 100MG/M2, 1 IN 2W(07JAN08) REC DOSE: 08APR09(7TH INF)
     Route: 042
     Dates: start: 20081217
  4. POLARAMINE [Concomitant]
     Indication: PREMEDICATION
     Route: 042
     Dates: start: 20081217
  5. SOLU-CORTEF [Concomitant]
     Indication: PREMEDICATION
     Route: 042
     Dates: start: 20081217
  6. KYTRIL [Concomitant]
     Indication: ANTIEMETIC SUPPORTIVE CARE
     Route: 042
     Dates: start: 20081217
  7. DECADRON [Concomitant]
     Indication: ANTIEMETIC SUPPORTIVE CARE
     Route: 042
     Dates: start: 20081217

REACTIONS (1)
  - PERIPHERAL SENSORY NEUROPATHY [None]
